FAERS Safety Report 15723132 (Version 3)
Quarter: 2019Q1

REPORT INFORMATION
  Report Type: Report from Study
  Country: US (occurrence: US)
  Receive Date: 20181214
  Receipt Date: 20190218
  Transmission Date: 20190417
  Serious: Yes (Other)
  Sender: FDA-Public Use
  Company Number: PHEH2018US051899

PATIENT
  Age: 13 Year
  Sex: Male

DRUGS (3)
  1. ILARIS [Suspect]
     Active Substance: CANAKINUMAB
     Indication: STILL^S DISEASE
     Dosage: UNK UNK, Q2W
     Route: 058
  2. ILARIS [Suspect]
     Active Substance: CANAKINUMAB
     Dosage: 200 MG, EVERY 28 DAYS
     Route: 058
     Dates: start: 2018, end: 20190108
  3. ILARIS [Suspect]
     Active Substance: CANAKINUMAB
     Indication: JUVENILE IDIOPATHIC ARTHRITIS
     Dosage: 150 MG, Q4W
     Route: 058

REACTIONS (15)
  - Alanine aminotransferase increased [Unknown]
  - Pallor [Unknown]
  - Arthralgia [Not Recovered/Not Resolved]
  - Peripheral swelling [Not Recovered/Not Resolved]
  - Oedema peripheral [Not Recovered/Not Resolved]
  - Condition aggravated [Not Recovered/Not Resolved]
  - Crepitations [Unknown]
  - Hypertension [Unknown]
  - Tachycardia [Unknown]
  - Still^s disease [Not Recovered/Not Resolved]
  - Drug ineffective [Unknown]
  - Dyspnoea [Unknown]
  - Juvenile idiopathic arthritis [Not Recovered/Not Resolved]
  - Joint swelling [Not Recovered/Not Resolved]
  - Pyrexia [Unknown]

NARRATIVE: CASE EVENT DATE: 201810
